FAERS Safety Report 4542950-1 (Version None)
Quarter: 2004Q4

REPORT INFORMATION
  Report Type: 
  Country: None (occurrence: None)
  Receive Date: 20041229
  Receipt Date: 20041214
  Transmission Date: 20050328
  Serious: Yes (Congenital Anomaly, Other)
  Sender: FDA-Public Use
  Company Number: 15803

PATIENT
  Age: 1 Week
  Weight: 2 kg

DRUGS (3)
  1. METHOTREXATE INJ. USP 50MG/2ML - BEN VENUE LABS, INC. [Suspect]
     Indication: BONE SARCOMA
  2. DOXORUBICIN HYDROCHLORIDE [Concomitant]
  3. CISPLATIN [Concomitant]

REACTIONS (6)
  - BONE FORMATION DECREASED [None]
  - CONGENITAL OSTEODYSTROPHY [None]
  - DRUG EXPOSURE DURING PREGNANCY [None]
  - FACIAL DYSMORPHISM [None]
  - MICROCEPHALY [None]
  - SMALL FOR DATES BABY [None]
